FAERS Safety Report 9261139 (Version 3)
Quarter: 2013Q4

REPORT INFORMATION
  Report Type: Spontaneous
  Country: JP (occurrence: JP)
  Receive Date: 20130429
  Receipt Date: 20131101
  Transmission Date: 20140711
  Serious: Yes (Death, Life-Threatening, Hospitalization, Other)
  Sender: FDA-Public Use
  Company Number: PHHY2013JP040968

PATIENT
  Age: 61 Year
  Sex: Male
  Weight: 43 kg

DRUGS (7)
  1. ZOMETA [Suspect]
     Indication: METASTASES TO BONE
     Route: 041
     Dates: start: 20070803, end: 20110121
  2. DOCETAXEL [Suspect]
     Indication: PROSTATE CANCER
     Dosage: 80 MG
     Dates: start: 20110323
  3. OXYCONTIN [Concomitant]
     Indication: PAIN MANAGEMENT
     Dosage: 10 MG
     Route: 048
     Dates: start: 20120831
  4. CELECOX [Concomitant]
     Indication: PAIN MANAGEMENT
     Dosage: 300 MG
     Route: 048
     Dates: start: 20120502
  5. CYTOTEC [Concomitant]
     Dosage: 600 UG
     Route: 048
     Dates: start: 20120502
  6. DECADRON//DEXAMETHASONE [Concomitant]
     Dosage: 1 MG
     Dates: start: 20090904
  7. PROSEXOL [Concomitant]
     Dosage: 1.5 MG
     Route: 048

REACTIONS (32)
  - Metastases to bone [Fatal]
  - Malignant neoplasm progression [Fatal]
  - Sepsis [Recovering/Resolving]
  - Inflammation [Unknown]
  - Cellulitis orbital [Recovering/Resolving]
  - Abscess [Recovering/Resolving]
  - Osteonecrosis [Not Recovered/Not Resolved]
  - Osteomyelitis [Recovered/Resolved]
  - Osteonecrosis of jaw [Unknown]
  - Loose tooth [Unknown]
  - Pathological fracture [Not Recovered/Not Resolved]
  - Exposed bone in jaw [Unknown]
  - Swelling [Unknown]
  - Erythema [Unknown]
  - Gingivitis [Unknown]
  - Lymph node pain [Unknown]
  - Jaw disorder [Unknown]
  - Haemoglobin decreased [Unknown]
  - Basophil count increased [Unknown]
  - Blood creatinine decreased [Unknown]
  - Blood glucose increased [Unknown]
  - Blood sodium decreased [Unknown]
  - Blood urea decreased [Unknown]
  - Lymphocyte percentage increased [Unknown]
  - White blood cell count increased [Unknown]
  - Aspartate aminotransferase increased [Unknown]
  - Alanine aminotransferase increased [Unknown]
  - White blood cell count decreased [Unknown]
  - Lymphocyte percentage decreased [Unknown]
  - Haematocrit decreased [Unknown]
  - Neutrophil percentage decreased [Unknown]
  - Red blood cell count decreased [Unknown]
